FAERS Safety Report 19684592 (Version 1)
Quarter: 2021Q3

REPORT INFORMATION
  Report Type: Spontaneous
  Country: US (occurrence: US)
  Receive Date: 20210810
  Receipt Date: 20210810
  Transmission Date: 20211014
  Serious: Yes (Hospitalization)
  Sender: FDA-Public Use
  Company Number: None

PATIENT
  Age: 28 Year
  Sex: Female
  Weight: 78 kg

DRUGS (6)
  1. VINCRISTINE SULFATE. [Suspect]
     Active Substance: VINCRISTINE SULFATE
     Dates: end: 20210723
  2. DAUNORUBICIN [Suspect]
     Active Substance: DAUNORUBICIN
     Dates: end: 20210723
  3. DEXAMETHASONE. [Suspect]
     Active Substance: DEXAMETHASONE
     Dates: end: 20210708
  4. ONCASPAR [Suspect]
     Active Substance: PEGASPARGASE
     Dates: end: 20210706
  5. CYTARABINE. [Suspect]
     Active Substance: CYTARABINE
     Dates: end: 20210702
  6. METHOTREXATE. [Suspect]
     Active Substance: METHOTREXATE
     Dates: end: 20210728

REACTIONS (6)
  - Suicide attempt [None]
  - Suicidal ideation [None]
  - Insomnia [None]
  - Anxiety [None]
  - Major depression [None]
  - Generalised anxiety disorder [None]

NARRATIVE: CASE EVENT DATE: 20210809
